FAERS Safety Report 8337609-9 (Version None)
Quarter: 2012Q2

REPORT INFORMATION
  Report Type: 
  Country: None (occurrence: None)
  Receive Date: 20120504
  Receipt Date: 20110909
  Transmission Date: 20120825
  Serious: No
  Sender: FDA-Public Use
  Company Number: US-TEVA-2011004782

PATIENT
  Sex: Female
  Weight: 59.02 kg

DRUGS (6)
  1. EFFEXOR [Concomitant]
  2. THYROID [Concomitant]
  3. NUVIGIL [Suspect]
     Indication: HYPERSOMNIA
     Route: 048
     Dates: start: 20110101
  4. FENTANYL CITRATE [Concomitant]
  5. LYRICA [Concomitant]
  6. MOTRIN [Concomitant]

REACTIONS (2)
  - INTENTIONAL DRUG MISUSE [None]
  - DRUG TOLERANCE [None]
